FAERS Safety Report 17230904 (Version 2)
Quarter: 2020Q1

REPORT INFORMATION
  Report Type: Spontaneous
  Country: US (occurrence: US)
  Receive Date: 20200103
  Receipt Date: 20200220
  Transmission Date: 20200409
  Serious: No
  Sender: FDA-Public Use
  Company Number: US-009507513-2001USA000649

PATIENT
  Age: 25 Year
  Sex: Female
  Weight: 68.93 kg

DRUGS (4)
  1. NEXPLANON [Suspect]
     Active Substance: ETONOGESTREL
     Dosage: 1 DOSAGE FORM
     Route: 059
     Dates: start: 20200206
  2. NEXPLANON [Suspect]
     Active Substance: ETONOGESTREL
     Indication: CONTRACEPTION
     Dosage: 68 MILLIGRAM
     Route: 059
     Dates: start: 20191230, end: 20191231
  3. MAXALT [Concomitant]
     Active Substance: RIZATRIPTAN BENZOATE
     Indication: MIGRAINE
     Dosage: 5 MILLIGRAM, PRN
     Route: 048
     Dates: start: 20191230
  4. IBUPROFEN. [Concomitant]
     Active Substance: IBUPROFEN
     Dosage: UNK

REACTIONS (4)
  - Pain in extremity [Recovered/Resolved]
  - Device expulsion [Recovered/Resolved]
  - Peripheral swelling [Recovered/Resolved]
  - Implant site pain [Recovered/Resolved]

NARRATIVE: CASE EVENT DATE: 20191230
